FAERS Safety Report 25547509 (Version 2)
Quarter: 2025Q3

REPORT INFORMATION
  Report Type: Spontaneous
  Country: CN (occurrence: CN)
  Receive Date: 20250714
  Receipt Date: 20250715
  Transmission Date: 20251021
  Serious: Yes (Life-Threatening, Hospitalization, Other)
  Sender: SANDOZ
  Company Number: CN-MLMSERVICE-20250627-PI557409-00100-1

PATIENT
  Age: 7 Decade
  Sex: Male
  Weight: 60 kg

DRUGS (7)
  1. CISATRACURIUM BESYLATE [Suspect]
     Active Substance: CISATRACURIUM BESYLATE
     Indication: Induction and maintenance of anaesthesia
     Route: 065
     Dates: start: 201406, end: 201406
  2. CISATRACURIUM BESYLATE [Suspect]
     Active Substance: CISATRACURIUM BESYLATE
     Route: 065
     Dates: start: 201406, end: 201406
  3. SEVOFLURANE [Suspect]
     Active Substance: SEVOFLURANE
     Indication: Maintenance of anaesthesia
     Route: 065
     Dates: start: 201406, end: 201406
  4. ETOMIDATE [Concomitant]
     Active Substance: ETOMIDATE
     Indication: Induction of anaesthesia
     Route: 065
     Dates: start: 201406, end: 201406
  5. REMIFENTANIL [Concomitant]
     Active Substance: REMIFENTANIL
     Indication: Maintenance of anaesthesia
     Route: 065
     Dates: start: 201406, end: 201406
  6. SUFENTANIL [Concomitant]
     Active Substance: SUFENTANIL
     Indication: Induction of anaesthesia
     Route: 065
     Dates: start: 201406, end: 201406
  7. SUFENTANIL [Concomitant]
     Active Substance: SUFENTANIL
     Indication: General anaesthesia

REACTIONS (3)
  - Hyperthermia malignant [Recovered/Resolved]
  - Myocardial necrosis marker increased [Recovered/Resolved]
  - Haemodynamic instability [Recovered/Resolved]

NARRATIVE: CASE EVENT DATE: 20140601
